FAERS Safety Report 7759701-X (Version None)
Quarter: 2011Q3

REPORT INFORMATION
  Report Type: 
  Country: None (occurrence: None)
  Receive Date: 20110919
  Receipt Date: 20110909
  Transmission Date: 20111222
  Serious: Yes (Death)
  Sender: FDA-Public Use
  Company Number: US-CELGENEUS-163-21880-10112058

PATIENT
  Sex: Female
  Weight: 77.18 kg

DRUGS (12)
  1. ENABLEX [Concomitant]
     Dosage: 7.5 MILLIGRAM
     Route: 065
  2. BUSPAR [Concomitant]
     Dosage: 5 MILLIGRAM
     Route: 065
  3. CALCIUM CARBONATE [Concomitant]
     Dosage: 500 MILLIGRAM
     Route: 065
  4. VITAMIN D [Concomitant]
     Route: 065
  5. REVLIMID [Suspect]
     Dosage: 5 MILLIGRAM
     Route: 048
     Dates: start: 20100901
  6. LIBRIUM [Concomitant]
     Dosage: 5 MILLIGRAM
     Route: 065
  7. ZANTAC [Concomitant]
     Dosage: 75
     Route: 065
  8. CELEXA [Concomitant]
     Dosage: 10 MILLIGRAM
     Route: 065
  9. COLACE [Concomitant]
     Dosage: 100 MILLIGRAM/MILLILITERS
     Route: 065
  10. LORATADINE [Concomitant]
     Route: 065
  11. REVLIMID [Suspect]
     Indication: MULTIPLE MYELOMA
     Dosage: 15 MILLIGRAM
     Route: 048
     Dates: start: 20100501
  12. MULTI-VITAMINS [Concomitant]
     Route: 065

REACTIONS (4)
  - BACK PAIN [None]
  - NEUROPATHY PERIPHERAL [None]
  - DEATH [None]
  - GAIT DISTURBANCE [None]
